FAERS Safety Report 12121233 (Version 1)
Quarter: 2016Q1

REPORT INFORMATION
  Report Type: Spontaneous
  Country: US (occurrence: US)
  Receive Date: 20160226
  Receipt Date: 20160226
  Transmission Date: 20160526
  Serious: No
  Sender: FDA-Public Use
  Company Number: US-SUPERNUS PHARMACEUTICALS, INC.-2016SUP00001

PATIENT
  Age: 34 Year
  Sex: Female
  Weight: 68.27 kg

DRUGS (2)
  1. TROKENDI XR [Suspect]
     Active Substance: TOPIRAMATE
     Indication: MIGRAINE
     Dosage: 25 MG, 1X/DAY
     Route: 048
     Dates: start: 20151224, end: 20151231
  2. IMITREX [Concomitant]
     Active Substance: SUMATRIPTAN SUCCINATE
     Indication: MIGRAINE
     Dosage: UNK, AS NEEDED

REACTIONS (7)
  - Eye disorder [Unknown]
  - Ocular discomfort [Recovered/Resolved]
  - Migraine [Recovering/Resolving]
  - Off label use [Recovered/Resolved]
  - Myopia [Recovered/Resolved]
  - Eye pain [Recovered/Resolved]
  - Astigmatism [Unknown]

NARRATIVE: CASE EVENT DATE: 20160101
